FAERS Safety Report 6917284-8 (Version None)
Quarter: 2010Q3

REPORT INFORMATION
  Report Type: 
  Country: None (occurrence: None)
  Receive Date: 20100810
  Receipt Date: 20100802
  Transmission Date: 20110219
  Serious: Yes (Other)
  Sender: FDA-Public Use
  Company Number: US-SANOFI-AVENTIS-2010SA045899

PATIENT
  Sex: Female

DRUGS (3)
  1. LANTUS [Suspect]
     Dosage: DOSE:35 UNIT(S)
     Route: 058
  2. LANTUS [Suspect]
     Route: 058
  3. OPTICLICK [Suspect]

REACTIONS (2)
  - EYE HAEMORRHAGE [None]
  - GLAUCOMA [None]
